FAERS Safety Report 4377032-5 (Version None)
Quarter: 2004Q2

REPORT INFORMATION
  Report Type: 
  Country: None (occurrence: None)
  Receive Date: 20040614
  Receipt Date: 20040602
  Transmission Date: 20050107
  Serious: Yes (Hospitalization)
  Sender: FDA-Public Use
  Company Number: JP-GLAXOSMITHKLINE-B0334738A

PATIENT
  Age: 21 Year
  Sex: Female

DRUGS (7)
  1. PAXIL [Suspect]
     Indication: DEPRESSION
     Route: 048
     Dates: start: 20040512, end: 20040525
  2. TETRAMIDE [Concomitant]
     Route: 048
  3. MEILAX [Concomitant]
     Route: 048
  4. BENZALIN [Concomitant]
     Route: 048
  5. ROHYPNOL [Concomitant]
     Route: 065
  6. HALCION [Concomitant]
     Route: 048
  7. LEVOTOMIN [Concomitant]
     Route: 065

REACTIONS (1)
  - PLEURISY [None]
